FAERS Safety Report 12863844 (Version 1)
Quarter: 2016Q4

REPORT INFORMATION
  Report Type: Spontaneous
  Country: US (occurrence: US)
  Receive Date: 20161019
  Receipt Date: 20161019
  Transmission Date: 20170207
  Serious: No
  Sender: FDA-Public Use
  Company Number: US-ACTELION-A-US2016-144103

PATIENT
  Age: 52 Year
  Sex: Female

DRUGS (2)
  1. REMODULIN [Concomitant]
     Active Substance: TREPROSTINIL
  2. TRACLEER [Suspect]
     Active Substance: BOSENTAN
     Indication: PULMONARY HYPERTENSION
     Dosage: 62.5 MG, BID
     Route: 048
     Dates: start: 20160125

REACTIONS (10)
  - Drug dose omission [Unknown]
  - Malaise [Unknown]
  - Palpitations [Unknown]
  - Syncope [Unknown]
  - Nausea [Unknown]
  - Dyspnoea [Unknown]
  - Hyperhidrosis [Unknown]
  - Dizziness [Unknown]
  - Vomiting [Unknown]
  - Loss of consciousness [Unknown]
